FAERS Safety Report 12438298 (Version 2)
Quarter: 2016Q3

REPORT INFORMATION
  Report Type: Spontaneous
  Country: US (occurrence: US)
  Receive Date: 20160606
  Receipt Date: 20160722
  Transmission Date: 20161109
  Serious: Yes (Hospitalization, Other)
  Sender: FDA-Public Use
  Company Number: US-GLAXOSMITHKLINE-US2016078032

PATIENT
  Age: 54 Year
  Sex: Female

DRUGS (22)
  1. FENTANYL. [Concomitant]
     Active Substance: FENTANYL
  2. NORVASC [Concomitant]
     Active Substance: AMLODIPINE BESYLATE
  3. OYSCO [Concomitant]
  4. GEMFIBROZIL. [Concomitant]
     Active Substance: GEMFIBROZIL
  5. B12 INJECTION [Concomitant]
  6. NEXIUM [Concomitant]
     Active Substance: ESOMEPRAZOLE MAGNESIUM
  7. PREMARIN [Concomitant]
     Active Substance: ESTROGENS, CONJUGATED
  8. SYMBICORT [Concomitant]
     Active Substance: BUDESONIDE\FORMOTEROL FUMARATE DIHYDRATE
  9. DIAZEPAM. [Concomitant]
     Active Substance: DIAZEPAM
  10. LOMOTIL [Concomitant]
     Active Substance: ATROPINE SULFATE\DIPHENOXYLATE HYDROCHLORIDE
  11. NEBULIZED ALBUTEROL [Concomitant]
     Active Substance: ALBUTEROL
  12. DEXILANT [Concomitant]
     Active Substance: DEXLANSOPRAZOLE
  13. HYDROCHLOROTHIAZIDE + TRIAMTERENE [Concomitant]
     Active Substance: HYDROCHLOROTHIAZIDE\TRIAMTERENE
  14. PROMETHAZINE [Concomitant]
     Active Substance: PROMETHAZINE\PROMETHAZINE HYDROCHLORIDE
  15. BENLYSTA [Suspect]
     Active Substance: BELIMUMAB
     Indication: SYSTEMIC LUPUS ERYTHEMATOSUS
     Dosage: UNK
     Route: 042
     Dates: start: 2013, end: 2015
  16. BENLYSTA [Suspect]
     Active Substance: BELIMUMAB
     Dosage: UNK
     Route: 042
     Dates: start: 20151114
  17. PEPCID AC [Concomitant]
     Active Substance: FAMOTIDINE
  18. SINGULAIR [Concomitant]
     Active Substance: MONTELUKAST SODIUM
  19. PREDNISONE. [Concomitant]
     Active Substance: PREDNISONE
  20. RESTORIL [Concomitant]
     Active Substance: TEMAZEPAM
  21. TUMS [Concomitant]
     Active Substance: CALCIUM CARBONATE
  22. VITAMIN E [Concomitant]
     Active Substance: .ALPHA.-TOCOPHEROL

REACTIONS (7)
  - Foreign body [Unknown]
  - Drug ineffective [Unknown]
  - Mastitis [Recovered/Resolved]
  - Biopsy breast [Recovered/Resolved]
  - Mastectomy [Recovered/Resolved]
  - Breast reconstruction [Unknown]
  - Dysphagia [Recovered/Resolved]

NARRATIVE: CASE EVENT DATE: 20140701
